FAERS Safety Report 9845904 (Version 1)
Quarter: 2014Q1

REPORT INFORMATION
  Report Type: Spontaneous
  Country: US (occurrence: None)
  Receive Date: 20140122
  Receipt Date: 20140122
  Transmission Date: 20141002
  Serious: Yes (Death)
  Sender: FDA-Public Use
  Company Number: B0960171A

PATIENT
  Age: 64 Year
  Sex: Female

DRUGS (1)
  1. CARVEDILOL [Suspect]
     Route: 048

REACTIONS (1)
  - Medication error [None]
